FAERS Safety Report 12224574 (Version 4)
Quarter: 2016Q2

REPORT INFORMATION
  Report Type: Spontaneous
  Country: IT (occurrence: IT)
  Receive Date: 20160331
  Receipt Date: 20160409
  Transmission Date: 20160815
  Serious: Yes (Other)
  Sender: FDA-Public Use
  Company Number: IT-ACCORD-039199

PATIENT
  Age: 50 Year
  Sex: Female

DRUGS (8)
  1. FLUOROURACIL. [Suspect]
     Active Substance: FLUOROURACIL
     Indication: RECTAL ADENOCARCINOMA
     Dosage: 600 MG IV BOLUS RECEIVED FROM 8-OCT-2015 TO 3-MAR-2016
     Route: 042
     Dates: start: 20151008
  2. TACHIPIRINA [Concomitant]
     Active Substance: ACETAMINOPHEN
     Dosage: STRENGTH: 1000 MG
  3. ZALTRAP [Suspect]
     Active Substance: ZIV-AFLIBERCEPT
     Indication: RECTAL ADENOCARCINOMA
     Dosage: 196 MG CYCLICAL
     Route: 042
     Dates: start: 20151008
  4. FOLINIC ACID [Concomitant]
     Active Substance: LEUCOVORIN
     Indication: RECTAL ADENOCARCINOMA
     Route: 042
     Dates: start: 20151008, end: 20160303
  5. VOLTFAST [Concomitant]
     Active Substance: DICLOFENAC POTASSIUM
     Dosage: STRENGTH: 50 MG
  6. FENTANYL. [Concomitant]
     Active Substance: FENTANYL
     Dosage: STRENGTH: 50 MCG/ML
  7. LYRICA [Concomitant]
     Active Substance: PREGABALIN
     Dosage: STRENGTH: 75 MG
  8. IRINOTECAN [Concomitant]
     Active Substance: IRINOTECAN
     Dosage: FOLFIRI/AFLIBERCEPT SEVENTH CYCLE.

REACTIONS (3)
  - Diarrhoea [Recovering/Resolving]
  - Paraesthesia [Not Recovered/Not Resolved]
  - Vaginal haemorrhage [Not Recovered/Not Resolved]

NARRATIVE: CASE EVENT DATE: 20160107
